FAERS Safety Report 5956953-3 (Version None)
Quarter: 2008Q4

REPORT INFORMATION
  Report Type: 
  Country: None (occurrence: None)
  Receive Date: 20081117
  Receipt Date: 20081117
  Transmission Date: 20090506
  Serious: No
  Sender: FDA-Public Use
  Company Number: None

PATIENT
  Age: 59 Year
  Sex: Male
  Weight: 131 kg

DRUGS (1)
  1. VARENICLINE [Suspect]
     Dosage: 1 MG BID PO
     Route: 048
     Dates: start: 20080203, end: 20080221

REACTIONS (3)
  - ANGER [None]
  - EYE PAIN [None]
  - PALPITATIONS [None]
